FAERS Safety Report 6016896-6 (Version None)
Quarter: 2008Q4

REPORT INFORMATION
  Report Type: 
  Country: None (occurrence: None)
  Receive Date: 20081219
  Receipt Date: 20080806
  Transmission Date: 20090506
  Serious: Yes (Other)
  Sender: FDA-Public Use
  Company Number: 2008US002083

PATIENT
  Age: 79 Year
  Sex: Female

DRUGS (5)
  1. ADENOSCAN [Suspect]
     Indication: SCAN MYOCARDIAL PERFUSION
     Dosage: 140, IV NOS
     Route: 042
  2. AMLODIPINE           (AMDLODIPINE BESILATE) [Concomitant]
  3. NICORANDIL (NICORANDIL) [Concomitant]
  4. PRAZOSIN (PRAZOSIN HYDROCHLORIDE) [Concomitant]
  5. ASPIRIN (CITRACI ACID) [Concomitant]

REACTIONS (3)
  - ARTERIOSPASM CORONARY [None]
  - VENTRICULAR EXTRASYSTOLES [None]
  - VENTRICULAR TACHYCARDIA [None]
